FAERS Safety Report 10155765 (Version 1)
Quarter: 2014Q2

REPORT INFORMATION
  Report Type: Spontaneous
  Country: IT (occurrence: IT)
  Receive Date: 20140506
  Receipt Date: 20140506
  Transmission Date: 20141212
  Serious: Yes (Death)
  Sender: FDA-Public Use
  Company Number: IT-TEVA-477892ISR

PATIENT
  Age: 50 Year
  Sex: Male

DRUGS (3)
  1. IRINOTECAN [Suspect]
     Indication: PRODUCT USED FOR UNKNOWN INDICATION
     Dosage: 280 MG CYCLICAL
     Route: 042
     Dates: start: 20140402, end: 20140402
  2. FLUOROURACIL [Suspect]
     Indication: PRODUCT USED FOR UNKNOWN INDICATION
     Dosage: 5560 MG CYCLICAL
     Route: 042
     Dates: start: 20140402, end: 20140404
  3. ERBITUX - 5 MG/ML SOLUZIONE PER INFUSIONE - MERCK KGAA [Suspect]
     Indication: COLON CANCER METASTATIC
     Dosage: 760 MG CYCLICAL
     Route: 042
     Dates: start: 20140402, end: 20140402

REACTIONS (1)
  - Hypovolaemic shock [Fatal]
